FAERS Safety Report 6754652-1 (Version None)
Quarter: 2010Q2

REPORT INFORMATION
  Report Type: 
  Country: None (occurrence: None)
  Receive Date: 20100603
  Receipt Date: 20100527
  Transmission Date: 20101027
  Serious: Yes (Hospitalization)
  Sender: FDA-Public Use
  Company Number: FR-ABBOTT-10P-056-0647370-00

PATIENT
  Age: 71 Year
  Sex: Female

DRUGS (5)
  1. DEPAKOTE [Suspect]
     Indication: PERSECUTORY DELUSION
     Route: 048
     Dates: start: 20100303
  2. RISPERDAL [Suspect]
     Indication: PERSECUTORY DELUSION
     Route: 048
     Dates: start: 20100301, end: 20100304
  3. RISPERDAL [Suspect]
     Route: 048
     Dates: start: 20100212, end: 20100302
  4. VALPROATE SODIUM [Suspect]
     Indication: PERSECUTORY DELUSION
     Dosage: GASTRO-RESISTANT TABLET, ORAL, DAILY
     Route: 048
     Dates: start: 20100303
  5. VALPROATE SODIUM [Suspect]
     Dosage: GASTRO-RESISTANT TABLET, ORAL, DAILY
     Route: 048
     Dates: start: 20100301, end: 20100303

REACTIONS (1)
  - NEUTROPENIA [None]
